FAERS Safety Report 12261639 (Version 1)
Quarter: 2016Q2

REPORT INFORMATION
  Report Type: Spontaneous
  Country: US (occurrence: None)
  Receive Date: 20160412
  Receipt Date: 20160412
  Transmission Date: 20160815
  Serious: Yes (Life-Threatening, Hospitalization)
  Sender: FDA-Public Use
  Company Number: None

PATIENT
  Age: 85 Year
  Sex: Male
  Weight: 83 kg

DRUGS (2)
  1. FERUMOXYTOL, 510 MG [Suspect]
     Active Substance: FERUMOXYTOL
     Indication: IRON DEFICIENCY ANAEMIA
     Route: 041
  2. FERUMOXYTOL, 510 MG [Suspect]
     Active Substance: FERUMOXYTOL
     Indication: ANAEMIA OF CHRONIC DISEASE
     Route: 041

REACTIONS (4)
  - Pulse absent [None]
  - Blood pressure immeasurable [None]
  - Anaphylactic reaction [None]
  - Infusion related reaction [None]

NARRATIVE: CASE EVENT DATE: 20160317
